FAERS Safety Report 11607711 (Version 2)
Quarter: 2015Q4

REPORT INFORMATION
  Report Type: Spontaneous
  Country: IT (occurrence: IT)
  Receive Date: 20151007
  Receipt Date: 20151007
  Transmission Date: 20160304
  Serious: Yes (Other)
  Sender: FDA-Public Use
  Company Number: IT-BAYER-2015-432347

PATIENT
  Sex: Male
  Weight: 3.21 kg

DRUGS (4)
  1. ACETYLSALICYLIC ACID({=100 MG) [Suspect]
     Active Substance: ASPIRIN
     Route: 064
  2. TACROLIMUS. [Concomitant]
     Active Substance: TACROLIMUS
     Route: 064
  3. ACETYLSALICYLIC ACID({=100 MG) [Suspect]
     Active Substance: ASPIRIN
     Route: 064
  4. TACROLIMUS. [Concomitant]
     Active Substance: TACROLIMUS
     Route: 064

REACTIONS (2)
  - Respiratory distress [Recovered/Resolved]
  - Foetal exposure timing unspecified [None]
